FAERS Safety Report 8162429-8 (Version None)
Quarter: 2012Q1

REPORT INFORMATION
  Report Type: 
  Country: None (occurrence: None)
  Receive Date: 20120103
  Receipt Date: 20111005
  Transmission Date: 20120608
  Serious: No
  Sender: FDA-Public Use
  Company Number: AE-2011-001848

PATIENT
  Age: 48 Year
  Sex: Male
  Weight: 90.7194 kg

DRUGS (6)
  1. IBUPROFEN [Concomitant]
  2. LISINOPRIL [Concomitant]
  3. INCIVEK [Suspect]
     Dosage: 1125 MG (375 MG, 3 IN 1 D), ORAL
     Route: 048
     Dates: start: 20110830, end: 20110913
  4. CIPRO [Concomitant]
  5. PEGASYS [Concomitant]
  6. RIBAVIRIN [Concomitant]

REACTIONS (5)
  - PAIN [None]
  - ABDOMINAL PAIN UPPER [None]
  - HAEMORRHOIDS [None]
  - DIARRHOEA [None]
  - FLATULENCE [None]
